FAERS Safety Report 5143789-9 (Version None)
Quarter: 2006Q4

REPORT INFORMATION
  Report Type: 
  Country: None (occurrence: None)
  Receive Date: 20061101
  Receipt Date: 20061101
  Transmission Date: 20070319
  Serious: No
  Sender: FDA-Public Use
  Company Number: None

PATIENT
  Age: 10 Year
  Sex: Female
  Weight: 28.5766 kg

DRUGS (2)
  1. KLONOPIN [Suspect]
     Indication: EPILEPSY
     Dosage: 1 1/2  PO  TID
     Route: 048
  2. KLONOPIN [Suspect]
     Indication: LENNOX-GASTAUT SYNDROME
     Dosage: 1 1/2  PO  TID
     Route: 048

REACTIONS (2)
  - IRRITABILITY [None]
  - SCREAMING [None]
